FAERS Safety Report 5774312-3 (Version None)
Quarter: 2008Q2

REPORT INFORMATION
  Report Type: 
  Country: None (occurrence: None)
  Receive Date: 20080616
  Receipt Date: 20080605
  Transmission Date: 20081010
  Serious: Yes (Hospitalization, Congenital Anomaly)
  Sender: FDA-Public Use
  Company Number: DE-PFIZER INC-2006091277

PATIENT
  Sex: Female
  Weight: 65 kg

DRUGS (4)
  1. SU-011,248 [Suspect]
     Indication: METASTATIC RENAL CELL CARCINOMA
     Route: 048
     Dates: start: 20060630, end: 20060724
  2. INSUMAN [Concomitant]
     Route: 058
  3. LANTUS [Concomitant]
     Route: 058
     Dates: start: 20040101
  4. DURAGESIC-100 [Concomitant]
     Route: 062
     Dates: start: 20010101

REACTIONS (3)
  - GASTRITIS [None]
  - GASTROOESOPHAGEAL REFLUX DISEASE [None]
  - HAEMOLYTIC ANAEMIA [None]
